FAERS Safety Report 6832769-0 (Version None)
Quarter: 2010Q3

REPORT INFORMATION
  Report Type: 
  Country: None (occurrence: None)
  Receive Date: 20100712
  Receipt Date: 20070622
  Transmission Date: 20110219
  Serious: No
  Sender: FDA-Public Use
  Company Number: US-PFIZER INC-2007023305

PATIENT
  Sex: Female
  Weight: 77.11 kg

DRUGS (12)
  1. CHANTIX [Suspect]
     Indication: SMOKING CESSATION THERAPY
     Route: 048
     Dates: start: 20070301
  2. CIMETIDINE [Concomitant]
  3. BACTRIM [Concomitant]
  4. VALSARTAN [Concomitant]
  5. SYNTHROID [Concomitant]
  6. ZANAFLEX [Concomitant]
  7. LAMICTAL [Concomitant]
  8. SEROQUEL [Concomitant]
  9. VISTARIL [Concomitant]
  10. PERCOCET [Concomitant]
  11. LEXAPRO [Concomitant]
  12. OTHER HYPNOTICS AND SEDATIVES [Concomitant]

REACTIONS (2)
  - IRRITABILITY [None]
  - NERVOUSNESS [None]
